FAERS Safety Report 21321346 (Version 2)
Quarter: 2022Q3

REPORT INFORMATION
  Report Type: Spontaneous
  Country: JP (occurrence: JP)
  Receive Date: 20220912
  Receipt Date: 20220927
  Transmission Date: 20221026
  Serious: Yes (Other)
  Sender: FDA-Public Use
  Company Number: ALC2022JP004202

PATIENT
  Age: 8 Year
  Sex: Female

DRUGS (2)
  1. PATANOL [Suspect]
     Active Substance: OLOPATADINE HYDROCHLORIDE
     Indication: Conjunctivitis allergic
     Dosage: 1 DOP/TIME, QID
     Route: 047
     Dates: start: 20170227, end: 20170317
  2. BETAMETHASONE\DEXCHLORPHENIRAMINE MALEATE [Suspect]
     Active Substance: BETAMETHASONE\DEXCHLORPHENIRAMINE MALEATE
     Indication: Dermatitis atopic
     Dosage: 1 DOSAGE FORM, QD
     Route: 048
     Dates: start: 20161202, end: 20170430

REACTIONS (3)
  - Alopecia areata [Not Recovered/Not Resolved]
  - Alopecia totalis [Not Recovered/Not Resolved]
  - Madarosis [Unknown]

NARRATIVE: CASE EVENT DATE: 20170301
